FAERS Safety Report 15506030 (Version 1)
Quarter: 2018Q4

REPORT INFORMATION
  Report Type: Other
  Country: GB (occurrence: GB)
  Receive Date: 20181016
  Receipt Date: 20181016
  Transmission Date: 20190205
  Serious: Yes (Life-Threatening, Hospitalization)
  Sender: FDA-Public Use
  Company Number: GB-ATLAS PHARMACEUTICALS, LLC-2056077

PATIENT
  Age: 64 Year
  Sex: Male

DRUGS (5)
  1. RANITIDINE. [Suspect]
     Active Substance: RANITIDINE
     Route: 065
  2. PRAVASTATIN. [Suspect]
     Active Substance: PRAVASTATIN
     Route: 065
  3. NIMODIPINE. [Suspect]
     Active Substance: NIMODIPINE
     Route: 065
  4. METFORMIN [Suspect]
     Active Substance: METFORMIN HYDROCHLORIDE
     Indication: PRODUCT USED FOR UNKNOWN INDICATION
     Route: 065
  5. RISPERIDONE. [Suspect]
     Active Substance: RISPERIDONE
     Route: 065

REACTIONS (8)
  - Cerebral infarction [Unknown]
  - Polyneuropathy [Unknown]
  - Lactic acidosis [Unknown]
  - Cognitive disorder [Unknown]
  - Intentional overdose [Unknown]
  - Renal failure [Unknown]
  - Cardiogenic shock [Unknown]
  - Brain injury [Unknown]
